FAERS Safety Report 12242849 (Version 1)
Quarter: 2016Q2

REPORT INFORMATION
  Report Type: Spontaneous
  Country: GB (occurrence: GB)
  Receive Date: 20160406
  Receipt Date: 20160406
  Transmission Date: 20160815
  Serious: Yes (Death)
  Sender: FDA-Public Use
  Company Number: GB-TEVA-648800ACC

PATIENT
  Age: 35 Year
  Sex: Male
  Weight: 127 kg

DRUGS (2)
  1. CITALOPRAM [Suspect]
     Active Substance: CITALOPRAM HYDROBROMIDE
     Indication: ANXIETY
     Dosage: 60 MILLIGRAM DAILY;
     Dates: start: 20151001
  2. HEROIN [Suspect]
     Active Substance: DIACETYLMORPHINE
     Indication: DRUG ABUSE

REACTIONS (3)
  - Arrhythmia [Fatal]
  - Toxicity to various agents [Fatal]
  - Sleep apnoea syndrome [Fatal]
